FAERS Safety Report 6949538-3 (Version None)
Quarter: 2010Q3

REPORT INFORMATION
  Report Type: 
  Country: None (occurrence: None)
  Receive Date: 20100828
  Receipt Date: 20091216
  Transmission Date: 20110219
  Serious: No
  Sender: FDA-Public Use
  Company Number: US-ABBOTT-09P-163-0615717-00

PATIENT
  Sex: Male
  Weight: 106.69 kg

DRUGS (8)
  1. NIASPAN [Suspect]
     Indication: BLOOD CHOLESTEROL
     Dates: start: 20090601
  2. FLOMAX [Concomitant]
     Indication: BENIGN PROSTATIC HYPERPLASIA
  3. LOVASA [Concomitant]
     Indication: BLOOD CHOLESTEROL INCREASED
  4. PREDNISONE [Concomitant]
     Indication: CORNEAL TRANSPLANT
  5. ARICEPT [Concomitant]
     Indication: MEMORY IMPAIRMENT
  6. VITAMINS [Concomitant]
     Indication: ROUTINE HEALTH MAINTENANCE
  7. AVANDIA [Concomitant]
     Indication: DIABETES MELLITUS
  8. METFORMIN [Concomitant]
     Indication: DIABETES MELLITUS

REACTIONS (1)
  - FLUSHING [None]
